FAERS Safety Report 20829560 (Version 2)
Quarter: 2022Q2

REPORT INFORMATION
  Report Type: Spontaneous
  Country: US (occurrence: US)
  Receive Date: 20220513
  Receipt Date: 20220525
  Transmission Date: 20220721
  Serious: Yes (Other)
  Sender: FDA-Public Use
  Company Number: US-PFIZER INC-202200615613

PATIENT
  Age: 54 Year
  Sex: Female

DRUGS (8)
  1. IBRANCE [Suspect]
     Active Substance: PALBOCICLIB
     Dosage: DAILY (21 DAYS, THEN 7 DAYS OFF)
     Route: 048
     Dates: start: 20220408
  2. ASPIRIN [Concomitant]
     Active Substance: ASPIRIN
     Dosage: UNK
  3. CALCIUM CARBONATE [Concomitant]
     Active Substance: CALCIUM CARBONATE
     Dosage: UNK
  4. FASLODEX [Concomitant]
     Active Substance: FULVESTRANT
     Dosage: UNK
  5. LORATADINE [Concomitant]
     Active Substance: LORATADINE
     Dosage: UNK
  6. PRILOSEC [Concomitant]
     Active Substance: OMEPRAZOLE MAGNESIUM
     Dosage: UNK
  7. XGEVA [Concomitant]
     Active Substance: DENOSUMAB
     Dosage: UNK
  8. CARBOPLATIN [Concomitant]
     Active Substance: CARBOPLATIN
     Dosage: UNK

REACTIONS (12)
  - Haemoglobin decreased [Unknown]
  - Fatigue [Unknown]
  - Asthenia [Unknown]
  - Laboratory test abnormal [Unknown]
  - Liver function test abnormal [Unknown]
  - Condition aggravated [Unknown]
  - Mood altered [Unknown]
  - Abdominal pain upper [Recovered/Resolved]
  - White blood cell count decreased [Unknown]
  - Night sweats [Unknown]
  - Headache [Unknown]
  - Nasal dryness [Unknown]
